FAERS Safety Report 20026728 (Version 2)
Quarter: 2022Q1

REPORT INFORMATION
  Report Type: Report from Study
  Country: US (occurrence: US)
  Receive Date: 20211102
  Receipt Date: 20220124
  Transmission Date: 20220423
  Serious: Yes (Other)
  Sender: FDA-Public Use
  Company Number: US-ABBVIE-21K-163-4140779-00

PATIENT
  Age: 20 Year
  Sex: Female
  Weight: 61.290 kg

DRUGS (4)
  1. CREON [Suspect]
     Active Substance: PANCRELIPASE AMYLASE\PANCRELIPASE LIPASE\PANCRELIPASE PROTEASE
     Indication: Pancreatitis chronic
     Route: 048
     Dates: start: 198905, end: 20220120
  2. PFIZER-BIONTECH COVID-19 VACCINE [Concomitant]
     Active Substance: TOZINAMERAN
     Indication: COVID-19 immunisation
     Dates: start: 20210316, end: 20210316
  3. PFIZER-BIONTECH COVID-19 VACCINE [Concomitant]
     Active Substance: TOZINAMERAN
     Dates: start: 20210406, end: 20210406
  4. SYNTHROID [Concomitant]
     Active Substance: LEVOTHYROXINE SODIUM
     Indication: Hyperthyroidism

REACTIONS (1)
  - Pancreatolithiasis [Unknown]

NARRATIVE: CASE EVENT DATE: 19890501
